FAERS Safety Report 19497935 (Version 1)
Quarter: 2021Q3

REPORT INFORMATION
  Report Type: Spontaneous
  Country: US (occurrence: US)
  Receive Date: 20210702
  Receipt Date: 20210702
  Transmission Date: 20211014
  Serious: Yes (Hospitalization)
  Sender: FDA-Public Use
  Company Number: None

PATIENT
  Age: 24 Year
  Sex: Female
  Weight: 65.8 kg

DRUGS (5)
  1. HYALURONIC ACID SYRINGE PEN [DEVICE] [Suspect]
     Active Substance: DEVICE
     Indication: SKIN COSMETIC PROCEDURE
     Dates: start: 20210419
  2. LIPO LAB PPC PHOSPHATIDYLCHOLINE [Suspect]
     Active Substance: LECITHIN
     Indication: SKIN COSMETIC PROCEDURE
     Route: 003
     Dates: start: 20210419, end: 20210419
  3. LIPO LAB PPC SOLUTION [Concomitant]
     Dates: start: 20210419, end: 20210419
  4. LIPO LAB PPC DEOXYCHOLATE [Suspect]
     Active Substance: SODIUM DESOXYCHOLATE
  5. DISPOSABLE STERILE AMPOULE FOR HYALURONIC SYRINGE PEN [Concomitant]
     Dates: start: 20210419, end: 20210419

REACTIONS (1)
  - Hospitalisation [None]

NARRATIVE: CASE EVENT DATE: 20210419
